FAERS Safety Report 13798579 (Version 1)
Quarter: 2017Q3

REPORT INFORMATION
  Report Type: Spontaneous
  Country: GB (occurrence: GB)
  Receive Date: 20170727
  Receipt Date: 20170727
  Transmission Date: 20171127
  Serious: Yes (Hospitalization)
  Sender: FDA-Public Use
  Company Number: GB-ALSI-201700224

PATIENT
  Age: 43 Year

DRUGS (4)
  1. IOPAMIDOL [Concomitant]
     Active Substance: IOPAMIDOL
     Dates: start: 20170714, end: 20170714
  2. CITRIC ACID ANHYDROUS; SODIUM PICOSULFATE; MAGNESIUM OXIDE LIGHT [Concomitant]
     Dates: start: 20170714, end: 20170714
  3. CARBON DIOXIDE MEDICINAL [Suspect]
     Active Substance: CARBON DIOXIDE
     Indication: COMPUTERISED TOMOGRAM INTESTINE
     Route: 054
     Dates: start: 20170714, end: 20170714
  4. BUSCOPAN HYOSCINE BUTYLBROMIDE; HYOSCINE N-BUTYLBROMIDE [Suspect]
     Active Substance: BUTYLSCOPOLAMINE BROMIDE
     Route: 042
     Dates: start: 20170714, end: 20170714

REACTIONS (4)
  - Retching [Recovered/Resolved]
  - Neck pain [Recovered/Resolved]
  - Erythema [Recovered/Resolved]
  - Nausea [Recovered/Resolved]

NARRATIVE: CASE EVENT DATE: 20170714
